FAERS Safety Report 10719445 (Version 2)
Quarter: 2015Q1

REPORT INFORMATION
  Report Type: Spontaneous
  Country: US (occurrence: US)
  Receive Date: 20150119
  Receipt Date: 20150119
  Transmission Date: 20150721
  Serious: No
  Sender: FDA-Public Use
  Company Number: US-UNITED THERAPEUTICS-UNT-2014-003878

PATIENT
  Age: 56 Year
  Sex: Female
  Weight: 99.77 kg

DRUGS (4)
  1. REMODULIN [Suspect]
     Active Substance: TREPROSTINIL
     Dosage: 0.0606 ?G/KG, CONTINUING
     Route: 058
     Dates: start: 20100812
  2. LETAIRIS [Concomitant]
     Active Substance: AMBRISENTAN
  3. ADCIRCA [Concomitant]
     Active Substance: TADALAFIL
     Indication: PRODUCT USED FOR UNKNOWN INDICATION
  4. REMODULIN [Suspect]
     Active Substance: TREPROSTINIL
     Indication: PULMONARY ARTERIAL HYPERTENSION
     Dosage: 0.0606 ?G/KG, CONTINUING
     Route: 041
     Dates: start: 20100812

REACTIONS (5)
  - Injection site discharge [Recovering/Resolving]
  - Dermatitis contact [Recovering/Resolving]
  - Fatigue [Not Recovered/Not Resolved]
  - Infusion site pain [Unknown]
  - Oedema [Unknown]

NARRATIVE: CASE EVENT DATE: 20140710
